FAERS Safety Report 21276636 (Version 1)
Quarter: 2022Q3

REPORT INFORMATION
  Report Type: Spontaneous
  Country: US (occurrence: US)
  Receive Date: 20220831
  Receipt Date: 20220831
  Transmission Date: 20221027
  Serious: No
  Sender: FDA-Public Use
  Company Number: US-ABBVIE-22K-163-4391115-00

PATIENT
  Age: 53 Year
  Sex: Female
  Weight: 52.664 kg

DRUGS (4)
  1. HUMIRA [Suspect]
     Active Substance: ADALIMUMAB
     Indication: Psoriatic arthropathy
     Route: 058
     Dates: start: 202111
  2. HUMIRA [Suspect]
     Active Substance: ADALIMUMAB
     Route: 058
     Dates: start: 202201
  3. ENBREL [Suspect]
     Active Substance: ETANERCEPT
     Indication: Psoriatic arthropathy
     Route: 058
     Dates: start: 202204
  4. OXYCODONE [Concomitant]
     Active Substance: OXYCODONE
     Indication: Headache

REACTIONS (5)
  - Injection site erythema [Recovered/Resolved]
  - Pruritus [Recovering/Resolving]
  - Burning sensation [Recovered/Resolved]
  - Pain in extremity [Recovered/Resolved]
  - Device issue [Not Recovered/Not Resolved]

NARRATIVE: CASE EVENT DATE: 20220401
